FAERS Safety Report 8987176 (Version 1)
Quarter: 2012Q4

REPORT INFORMATION
  Report Type: 
  Country: IT (occurrence: IT)
  Receive Date: 20121226
  Receipt Date: 20121226
  Transmission Date: 20130627
  Serious: Yes (Hospitalization)
  Sender: FDA-Public Use
  Company Number: IT-ROCHE-1173367

PATIENT
  Age: 42 Year
  Sex: Male

DRUGS (11)
  1. RIVOTRIL [Suspect]
     Indication: INTENTIONAL SELF-INJURY
     Route: 048
     Dates: start: 20120101, end: 20121216
  2. METHADONE HYDROCHLORIDE [Suspect]
     Indication: INTENTIONAL SELF-INJURY
     Dosage: CLORIDATDrug reported as METHADONE O AFOM
     Route: 048
     Dates: start: 20120101, end: 20121216
  3. ZYPREXA [Concomitant]
  4. LASIX [Concomitant]
     Route: 065
  5. NORMIX [Concomitant]
     Route: 065
  6. SIRDALUD [Concomitant]
     Route: 065
  7. LASITONE [Concomitant]
     Dosage: 25 mg + 37 mg
     Route: 065
  8. EUTIROX [Concomitant]
     Route: 065
  9. NORMASE [Concomitant]
     Route: 065
  10. TRUVADA [Concomitant]
  11. PANTORC [Concomitant]

REACTIONS (3)
  - Brain hypoxia [Recovering/Resolving]
  - Respiratory acidosis [Recovering/Resolving]
  - Rhabdomyolysis [Recovering/Resolving]
